FAERS Safety Report 5877371-2 (Version None)
Quarter: 2008Q3

REPORT INFORMATION
  Report Type: 
  Country: None (occurrence: None)
  Receive Date: 20080908
  Receipt Date: 20080825
  Transmission Date: 20090109
  Serious: Yes (Hospitalization, Other)
  Sender: FDA-Public Use
  Company Number: 2008EN000019

PATIENT
  Age: 4 Year
  Sex: Male

DRUGS (2)
  1. ADAGEN [Suspect]
     Indication: ADENOSINE DEAMINASE DEFICIENCY
     Dates: start: 20071101
  2. ADAGEN [Suspect]
     Indication: COMBINED IMMUNODEFICIENCY
     Dates: start: 20071101

REACTIONS (3)
  - CHOLANGITIS SCLEROSING [None]
  - DIARRHOEA [None]
  - LIVER FUNCTION TEST ABNORMAL [None]
